FAERS Safety Report 16572698 (Version 2)
Quarter: 2019Q3

REPORT INFORMATION
  Report Type: Report from Study
  Country: DE (occurrence: DE)
  Receive Date: 20190715
  Receipt Date: 20190723
  Transmission Date: 20191004
  Serious: Yes (Hospitalization)
  Sender: FDA-Public Use
  Company Number: DE-MYLANLABS-2019M1064854

PATIENT
  Age: 85 Year
  Sex: Male
  Weight: 120 kg

DRUGS (7)
  1. TORASEMIDE [Suspect]
     Active Substance: TORSEMIDE
     Dosage: 80 MILLIGRAM, QD
     Route: 065
     Dates: start: 20161223
  2. TORASEMIDE [Suspect]
     Active Substance: TORSEMIDE
     Indication: CARDIAC FAILURE
     Dosage: 40 MILLIGRAM, BID, (80 MILLIGRAM, QD)
     Route: 065
     Dates: start: 2016
  3. METOPROLOL. [Concomitant]
     Active Substance: METOPROLOL
     Indication: CARDIAC FAILURE
     Dosage: 95 MILLIGRAM, BID (190 MG, QD)
     Route: 065
     Dates: start: 2014
  4. ENTRESTO [Suspect]
     Active Substance: SACUBITRIL\VALSARTAN
     Indication: CARDIAC FAILURE
     Dosage: 1 DOSAGE FORM, BID, (2 DOSAGE FORM, QD, 1 DF (97 MG SACUBITRIL AND 103 MG VALSARTAN), BID)
     Route: 048
     Dates: start: 20160530
  5. ATORVASTATIN [Concomitant]
     Active Substance: ATORVASTATIN
     Indication: BLOOD CHOLESTEROL ABNORMAL
     Dosage: 20 MG, QD
     Route: 065
     Dates: start: 2016
  6. METOPROLOL. [Concomitant]
     Active Substance: METOPROLOL
     Indication: HYPERTENSION
     Dosage: UNK
     Route: 065
  7. METOPROLOL. [Concomitant]
     Active Substance: METOPROLOL
     Dosage: 95 MG, BID
     Route: 065
     Dates: start: 2014

REACTIONS (2)
  - Weight decreased [Unknown]
  - Cardiac failure [Recovering/Resolving]

NARRATIVE: CASE EVENT DATE: 20161223
